FAERS Safety Report 5903328-9 (Version None)
Quarter: 2008Q3

REPORT INFORMATION
  Report Type: 
  Country: None (occurrence: None)
  Receive Date: 20080926
  Receipt Date: 20080910
  Transmission Date: 20090109
  Serious: Yes (Hospitalization, Other)
  Sender: FDA-Public Use
  Company Number: DSU-2008-01449

PATIENT
  Age: 74 Year
  Sex: Female

DRUGS (3)
  1. OLMETEC HCT (HYDROCHLOROTHIAZIDE, OLMESARTAN MEDOXOMIL) (TABLET) (HYDR [Suspect]
     Indication: HYPERTENSION
     Dosage: 40/25 MILLIGRAM (QD), PER ORAL
     Route: 048
     Dates: start: 20071109
  2. LIPITOR [Concomitant]
  3. LAMBRETI (INGREDIENTS UNKNOWN) [Concomitant]

REACTIONS (7)
  - ANGINA PECTORIS [None]
  - BLOOD PRESSURE DECREASED [None]
  - BLOOD PRESSURE INCREASED [None]
  - CARDIAC DISORDER [None]
  - CEREBROVASCULAR ACCIDENT [None]
  - DRUG INEFFECTIVE [None]
  - INFARCTION [None]
